FAERS Safety Report 4771718-6 (Version None)
Quarter: 2005Q3

REPORT INFORMATION
  Report Type: 
  Country: None (occurrence: None)
  Receive Date: 20050916
  Receipt Date: 20050729
  Transmission Date: 20060218
  Serious: Yes (Hospitalization)
  Sender: FDA-Public Use
  Company Number: PHBS2005JP11161

PATIENT
  Age: 72 Year
  Sex: Male
  Weight: 73 kg

DRUGS (18)
  1. DIOVAN [Suspect]
     Indication: HYPERTENSION
     Dosage: 80 MG/DAY
     Route: 048
     Dates: start: 20050511, end: 20050531
  2. DIOVAN [Suspect]
     Dosage: 80 MG/DAY
     Route: 048
     Dates: start: 20050702, end: 20050706
  3. SYMMETREL [Suspect]
     Indication: HEMIPLEGIA
     Dosage: 150 MG/DAY
     Route: 048
     Dates: start: 20050526, end: 20050531
  4. SYMMETREL [Suspect]
     Dosage: 2  DF/DAY
     Route: 048
     Dates: start: 20050601, end: 20050630
  5. SYMMETREL [Suspect]
     Dosage: 150 MG/DAY
     Route: 048
     Dates: start: 20050702, end: 20050704
  6. GASTER [Concomitant]
     Indication: GASTRITIS
     Dosage: 20 MG/DAY
     Route: 048
     Dates: start: 20050501, end: 20050704
  7. CONTOMIN [Concomitant]
     Indication: ANXIETY
     Dosage: 25 MG/DAY
     Route: 048
     Dates: start: 20050501, end: 20050704
  8. CALBLOCK [Suspect]
     Indication: HYPERTENSION
     Dosage: 16 MG/DAY
     Route: 048
     Dates: start: 20050501, end: 20050531
  9. CALBLOCK [Suspect]
     Dosage: 16 MG/DAY
     Route: 048
     Dates: start: 20050702, end: 20050706
  10. MAGNESIUM OXIDE [Concomitant]
     Indication: CONSTIPATION
     Dosage: 2 G/DAY
     Route: 048
     Dates: start: 20050501, end: 20050706
  11. NITRODERM [Concomitant]
     Indication: ACUTE MYOCARDIAL INFARCTION
     Dosage: 1 PATCH/DAY
     Dates: start: 20050501
  12. MYSLEE [Concomitant]
     Dosage: 10 MG, UNK
     Route: 048
     Dates: start: 20050601, end: 20050630
  13. MAGMITT [Concomitant]
     Dosage: 2 G, UNK
     Route: 048
     Dates: start: 20050601, end: 20050630
  14. DEPAS [Concomitant]
     Dosage: 0.5 MG, UNK
     Route: 048
     Dates: start: 20050601, end: 20050630
  15. FRANDOL [Concomitant]
     Dosage: 1 DF, UNK
     Dates: start: 20050601, end: 20050630
  16. CORINAEL [Concomitant]
     Dosage: 10 MG, UNK
     Route: 048
     Dates: start: 20050601, end: 20050630
  17. RENIVACE [Concomitant]
     Dosage: 10 MG, UNK
     Route: 048
     Dates: start: 20050601, end: 20050630
  18. FAMOTIDINE [Concomitant]
     Dosage: 2 G, UNK
     Route: 048
     Dates: start: 20050601, end: 20050630

REACTIONS (8)
  - ALANINE AMINOTRANSFERASE INCREASED [None]
  - ASPARTATE AMINOTRANSFERASE INCREASED [None]
  - BLOOD ALKALINE PHOSPHATASE INCREASED [None]
  - BLOOD BILIRUBIN ABNORMAL [None]
  - GAMMA-GLUTAMYLTRANSFERASE INCREASED [None]
  - JAUNDICE [None]
  - LIVER DISORDER [None]
  - LIVER FUNCTION TEST ABNORMAL [None]
